FAERS Safety Report 14114185 (Version 4)
Quarter: 2018Q3

REPORT INFORMATION
  Report Type: Spontaneous
  Country: DK (occurrence: DK)
  Receive Date: 20171023
  Receipt Date: 20180726
  Transmission Date: 20181010
  Serious: Yes (Hospitalization, Other)
  Sender: FDA-Public Use
  Company Number: PHHY2017DK152769

PATIENT
  Age: 70 Year
  Sex: Male
  Weight: 89 kg

DRUGS (11)
  1. FURIX [Concomitant]
     Active Substance: FUROSEMIDE
     Indication: POLYURIA
     Dosage: 20 MG, QD
     Route: 048
     Dates: start: 20170228
  2. METOPROLOL TARTRATE. [Concomitant]
     Active Substance: METOPROLOL TARTRATE
     Indication: HYPERTENSION
     Dosage: 50 MG, UNK
     Route: 048
     Dates: start: 20160317
  3. SPIRIVA [Concomitant]
     Active Substance: TIOTROPIUM BROMIDE MONOHYDRATE
     Indication: CHRONIC OBSTRUCTIVE PULMONARY DISEASE
     Dosage: STYRKE: 2,5 UG, DAY
     Route: 055
     Dates: start: 20160823
  4. FIRMAGON [Concomitant]
     Active Substance: DEGARELIX ACETATE
     Indication: PROSTATE CANCER
     Dosage: 80 MG, Q4W
     Route: 058
     Dates: start: 20160318
  5. BENADRYL [Concomitant]
     Active Substance: DIPHENHYDRAMINE HYDROCHLORIDE
     Indication: SEASONAL ALLERGY
     Dosage: 8 MG, QD
     Route: 048
     Dates: start: 20160116
  6. SYMBICORT [Concomitant]
     Active Substance: BUDESONIDE\FORMOTEROL FUMARATE DIHYDRATE
     Indication: ASTHMA
     Dosage: STRENGTH: 4.5 + 80 MICROGRAM / DOSE.
     Route: 055
     Dates: start: 20160808
  7. FRAGMIN [Concomitant]
     Active Substance: DALTEPARIN SODIUM
     Indication: THROMBOSIS
     Dosage: SYRINGE DAILY NOON. STRENGTH: 12,500 ANTI?XA IU
     Route: 058
     Dates: start: 20170703
  8. CORODIL (ENALAPRIL MALEATE) [Suspect]
     Active Substance: ENALAPRIL MALEATE
     Indication: ANGIOTENSIN CONVERTING ENZYME INCREASED
     Dosage: 10 MG, QD
     Route: 065
     Dates: start: 20140101, end: 20170811
  9. XTANDI [Interacting]
     Active Substance: ENZALUTAMIDE
     Indication: HORMONE-REFRACTORY PROSTATE CANCER
     Dosage: 160 MG, QD
     Route: 048
     Dates: start: 20170628, end: 20170811
  10. CORDAN [Concomitant]
     Indication: HEART RATE IRREGULAR
     Dosage: DOSAGE: EACH TABLET IS GIVEN 1 TABLET. EVERY OTHER DAY TABLET
     Route: 048
  11. EUTHYROX [Concomitant]
     Active Substance: LEVOTHYROXINE SODIUM
     Indication: HYPOTHYROIDISM
     Dosage: 1.5 TABLETS BEFORE BEDTIME
     Route: 048
     Dates: start: 20140717

REACTIONS (4)
  - Dyspnoea [Recovered/Resolved]
  - Anaphylactic reaction [Recovered/Resolved]
  - Oropharyngeal oedema [Recovered/Resolved]
  - Drug interaction [Recovered/Resolved]

NARRATIVE: CASE EVENT DATE: 20170811
